FAERS Safety Report 9601318 (Version 1)
Quarter: 2013Q4

REPORT INFORMATION
  Report Type: Spontaneous
  Country: US (occurrence: US)
  Receive Date: 20131007
  Receipt Date: 20131007
  Transmission Date: 20140711
  Serious: Yes (Other)
  Sender: FDA-Public Use
  Company Number: US-ROCHE-1283600

PATIENT
  Age: 2 Year
  Sex: Female

DRUGS (8)
  1. ZENAPAX [Suspect]
     Indication: IMMUNOSUPPRESSION
     Route: 065
  2. CELLCEPT [Suspect]
     Indication: IMMUNOSUPPRESSION
     Route: 065
  3. PROGRAF [Suspect]
     Indication: IMMUNOSUPPRESSION
     Route: 065
  4. PROGRAF [Suspect]
     Dosage: DOSE REDUCED BY 50 PERCENT
     Route: 065
  5. METHYLPREDNISOLONE [Suspect]
     Indication: IMMUNOSUPPRESSION
     Route: 065
  6. HYDROCORTISONE [Suspect]
     Indication: IMMUNOSUPPRESSION
     Route: 065
  7. PREDNISONE [Suspect]
     Indication: IMMUNOSUPPRESSION
     Route: 065
  8. RATG [Suspect]
     Indication: IMMUNOSUPPRESSION
     Route: 065

REACTIONS (1)
  - Post transplant lymphoproliferative disorder [Recovered/Resolved]
